FAERS Safety Report 15130646 (Version 4)
Quarter: 2018Q3

REPORT INFORMATION
  Report Type: Spontaneous
  Country: CA (occurrence: CA)
  Receive Date: 20180711
  Receipt Date: 20180828
  Transmission Date: 20181010
  Serious: Yes (Other)
  Sender: FDA-Public Use
  Company Number: CA-CELLTRION INC.-2017CA006471

PATIENT

DRUGS (12)
  1. INFLECTRA [Suspect]
     Active Substance: INFLIXIMAB-DYYB
     Dosage: 10 MG/KG, CYCLIC EVERY 8 WEEKS
     Route: 042
     Dates: start: 20180117
  2. INFLECTRA [Suspect]
     Active Substance: INFLIXIMAB-DYYB
     Dosage: 10 MG/KG, CYCLIC EVERY 8 WEEKS
     Route: 042
     Dates: start: 20180313
  3. INFLECTRA [Suspect]
     Active Substance: INFLIXIMAB-DYYB
     Dosage: 750 MG (10MG/KG); CYCLIC EVERY 8 WEEKS
     Route: 042
     Dates: start: 20180712
  4. GABAPENTIN. [Concomitant]
     Active Substance: GABAPENTIN
     Indication: PRODUCT USED FOR UNKNOWN INDICATION
     Dosage: 600 MG, TWICE DAILY
  5. RABEPRAZOLE [Concomitant]
     Active Substance: RABEPRAZOLE
     Indication: PRODUCT USED FOR UNKNOWN INDICATION
     Dosage: 20 MG, DAILY
     Route: 065
  6. IMODIUM [Concomitant]
     Active Substance: LOPERAMIDE HYDROCHLORIDE
     Indication: PRODUCT USED FOR UNKNOWN INDICATION
     Dosage: UNK
     Route: 065
  7. SIMVASTATIN. [Concomitant]
     Active Substance: SIMVASTATIN
     Indication: PRODUCT USED FOR UNKNOWN INDICATION
     Dosage: 10 MG, DAILY
     Route: 065
  8. CODEINE [Concomitant]
     Active Substance: CODEINE
  9. INFLECTRA [Suspect]
     Active Substance: INFLIXIMAB-DYYB
     Indication: CROHN^S DISEASE
     Dosage: 400 MG, CYCLIC  0, 2, 6 WEEKS, THEN EVERY 8 WEEKS
     Route: 042
     Dates: start: 20170321, end: 20171122
  10. VENLAFAXINE HYDROCHLORIDE. [Concomitant]
     Active Substance: VENLAFAXINE HYDROCHLORIDE
     Indication: PRODUCT USED FOR UNKNOWN INDICATION
     Dosage: 975 MG, DAILY
  11. CODEINE CONTIN [Concomitant]
     Active Substance: CODEINE SULFATE
     Indication: PRODUCT USED FOR UNKNOWN INDICATION
     Dosage: 200 MG, TWICE DAILY
     Route: 065
  12. INFLECTRA [Suspect]
     Active Substance: INFLIXIMAB-DYYB
     Dosage: 750 MG (10MG/KG); CYCLIC EVERY 8 WEEKS
     Route: 042
     Dates: start: 20180508

REACTIONS (7)
  - Chronic obstructive pulmonary disease [Unknown]
  - Drug ineffective [Not Recovered/Not Resolved]
  - Administration site extravasation [Unknown]
  - Dyspnoea [Not Recovered/Not Resolved]
  - Asthenia [Unknown]
  - Poor venous access [Unknown]
  - Pneumonia [Recovered/Resolved]
